FAERS Safety Report 13919555 (Version 1)
Quarter: 2017Q3

REPORT INFORMATION
  Report Type: Spontaneous
  Country: US (occurrence: None)
  Receive Date: 20170829
  Receipt Date: 20170829
  Transmission Date: 20171127
  Serious: No
  Sender: FDA-Public Use
  Company Number: None

PATIENT
  Age: 87 Year
  Sex: Male
  Weight: 113.44 kg

DRUGS (1)
  1. LIDOCAINE. [Suspect]
     Active Substance: LIDOCAINE
     Indication: NEUROPATHY PERIPHERAL
     Dosage: 1
     Route: 058
     Dates: start: 20170324, end: 20170803

REACTIONS (2)
  - Product adhesion issue [None]
  - Drug effect decreased [None]

NARRATIVE: CASE EVENT DATE: 20170803
